FAERS Safety Report 12584880 (Version 2)
Quarter: 2016Q3

REPORT INFORMATION
  Report Type: Spontaneous
  Country: JP (occurrence: CA)
  Receive Date: 20160722
  Receipt Date: 20160728
  Transmission Date: 20161109
  Serious: Yes (Hospitalization, Other)
  Sender: FDA-Public Use
  Company Number: JP-SUNOVION-2016SUN001778

PATIENT
  Age: 60 Year
  Sex: Female

DRUGS (15)
  1. OMNARIS [Suspect]
     Active Substance: CICLESONIDE
     Indication: SINUSITIS
     Dosage: INTERMITTENTLY
     Route: 045
     Dates: start: 2008
  2. TELMISARTAN. [Concomitant]
     Active Substance: TELMISARTAN
     Dosage: 80 MG, QD
  3. FOLIC ACID. [Concomitant]
     Active Substance: FOLIC ACID
     Dosage: 5 MG, QD
  4. CODEINE [Suspect]
     Active Substance: CODEINE
     Indication: PRODUCT USED FOR UNKNOWN INDICATION
     Dosage: UNK
     Route: 065
     Dates: start: 2010, end: 2010
  5. BUDESONIDE. [Concomitant]
     Active Substance: BUDESONIDE
     Dosage: UNK
     Dates: start: 201407
  6. ESTRADIOL. [Concomitant]
     Active Substance: ESTRADIOL
     Dosage: UNK, 1/WEEK
     Route: 062
  7. PROCTOL [Concomitant]
     Dosage: UNK
  8. SALOFALK [Concomitant]
     Active Substance: MESALAMINE
     Dosage: UNK
     Dates: start: 201407
  9. WARFARIN [Concomitant]
     Active Substance: WARFARIN
     Dosage: 4 MG, QD
  10. PROMETRIUM [Concomitant]
     Active Substance: PROGESTERONE
     Dosage: 100 MG, QD
  11. KEFLEX [Suspect]
     Active Substance: CEPHALEXIN
     Indication: PRODUCT USED FOR UNKNOWN INDICATION
     Dosage: UNK
     Route: 065
     Dates: start: 2008, end: 2008
  12. REMICADE [Suspect]
     Active Substance: INFLIXIMAB
     Indication: PRODUCT USED FOR UNKNOWN INDICATION
     Dosage: UNK
     Route: 065
     Dates: start: 2003, end: 2013
  13. METHOTREXATE. [Suspect]
     Active Substance: METHOTREXATE
     Indication: PRODUCT USED FOR UNKNOWN INDICATION
     Dosage: UNK
     Route: 065
     Dates: start: 2003, end: 2013
  14. VITAMIN B12 [Concomitant]
     Active Substance: CYANOCOBALAMIN
     Dosage: UNK UNK, Q4WEEKS
  15. PREDNISONE. [Concomitant]
     Active Substance: PREDNISONE
     Dosage: UNK
     Dates: start: 2014

REACTIONS (16)
  - Heart rate increased [Unknown]
  - Product use issue [Unknown]
  - Hypertensive crisis [Unknown]
  - Neurological symptom [Recovering/Resolving]
  - Migraine [Unknown]
  - Dyspnoea [Unknown]
  - Vomiting [Unknown]
  - Off label use [Unknown]
  - Subclavian vein thrombosis [Unknown]
  - Chronic sinusitis [Recovered/Resolved]
  - Crohn^s disease [Unknown]
  - Rash [Unknown]
  - Lethargy [Unknown]
  - Abscess intestinal [Unknown]
  - Multiple sclerosis [Unknown]
  - Chills [Unknown]

NARRATIVE: CASE EVENT DATE: 2008
